FAERS Safety Report 24170976 (Version 1)
Quarter: 2024Q3

REPORT INFORMATION
  Report Type: Spontaneous
  Country: US (occurrence: None)
  Receive Date: 20240801
  Receipt Date: 20240801
  Transmission Date: 20241016
  Serious: Yes (Death)
  Sender: Public
  Company Number: None

PATIENT
  Age: 79 Year
  Sex: Male
  Weight: 54.3 kg

DRUGS (1)
  1. CARVYKTI [Suspect]
     Active Substance: CILTACABTAGENE AUTOLEUCEL
     Indication: Plasma cell myeloma
     Dosage: OTHER FREQUENCY : 1X10E8;?
     Route: 042
     Dates: end: 20240612

REACTIONS (20)
  - Cytokine release syndrome [None]
  - Pyrexia [None]
  - Hypotension [None]
  - Failure to thrive [None]
  - Pancytopenia [None]
  - Blood triglycerides decreased [None]
  - Blood fibrinogen decreased [None]
  - Cytopenia [None]
  - Pain in jaw [None]
  - Oral candidiasis [None]
  - Hyperglycaemia [None]
  - Gingival erythema [None]
  - Septic shock [None]
  - Lactic acidosis [None]
  - Tachypnoea [None]
  - Mental disorder [None]
  - Hypoxia [None]
  - Tooth abscess [None]
  - Mucosal inflammation [None]
  - Immune effector cell-associated HLH-like syndrome [None]

NARRATIVE: CASE EVENT DATE: 20240709
